FAERS Safety Report 9177728 (Version 1)
Quarter: 2013Q1

REPORT INFORMATION
  Report Type: Report from Study
  Country: IT (occurrence: IT)
  Receive Date: 20130321
  Receipt Date: 20130321
  Transmission Date: 20140127
  Serious: Yes (Life-Threatening, Hospitalization)
  Sender: FDA-Public Use
  Company Number: PHHO2012IT000499

PATIENT
  Age: 29 Year
  Sex: Male
  Weight: 120 kg

DRUGS (3)
  1. SOM230 [Suspect]
     Indication: ACROMEGALY
     Dosage: 60 MG, UNK
     Route: 065
     Dates: start: 20101217, end: 20111201
  2. EUTIROX [Concomitant]
     Dosage: 75 MG, QW3
     Route: 065
  3. TESTOSTERONE PROPIONATE [Concomitant]
     Dosage: 1 PILL EVERY 10 DAYS

REACTIONS (1)
  - Suicide attempt [Recovered/Resolved]
